FAERS Safety Report 17062990 (Version 3)
Quarter: 2020Q1

REPORT INFORMATION
  Report Type: Spontaneous
  Country: JP (occurrence: JP)
  Receive Date: 20191122
  Receipt Date: 20200213
  Transmission Date: 20200409
  Serious: Yes (Death, Other)
  Sender: FDA-Public Use
  Company Number: JP-AMGEN-JPNSP2019193827

PATIENT
  Age: 79 Year
  Sex: Female

DRUGS (1)
  1. VECTIBIX [Suspect]
     Active Substance: PANITUMUMAB
     Indication: COLON CANCER RECURRENT
     Dosage: UNK
     Route: 042
     Dates: start: 201910

REACTIONS (1)
  - IgA nephropathy [Fatal]

NARRATIVE: CASE EVENT DATE: 20191108
